FAERS Safety Report 6262800-5 (Version None)
Quarter: 2009Q3

REPORT INFORMATION
  Report Type: 
  Country: None (occurrence: None)
  Receive Date: 20090709
  Receipt Date: 20090702
  Transmission Date: 20100115
  Serious: Yes (Other)
  Sender: FDA-Public Use
  Company Number: GB-MERCK-0907GBR00010

PATIENT
  Age: 77 Year
  Sex: Male

DRUGS (3)
  1. COZAAR [Suspect]
     Indication: HYPERTENSION
     Route: 048
     Dates: start: 20090428, end: 20090522
  2. ATORVASTATIN [Concomitant]
     Indication: HYPERLIPIDAEMIA
     Route: 048
     Dates: start: 20030417
  3. BIMATOPROST [Concomitant]
     Indication: GLAUCOMA
     Route: 047
     Dates: start: 20060614

REACTIONS (1)
  - INTRAOCULAR PRESSURE INCREASED [None]
